FAERS Safety Report 24392331 (Version 6)
Quarter: 2024Q4

REPORT INFORMATION
  Report Type: Spontaneous
  Country: US (occurrence: US)
  Receive Date: 20241003
  Receipt Date: 20241104
  Transmission Date: 20250115
  Serious: Yes (Other)
  Sender: ROCHE
  Company Number: US-ROCHE-10000095861

PATIENT
  Age: 53 Year
  Sex: Female
  Weight: 78.3 kg

DRUGS (18)
  1. XOLAIR [Suspect]
     Active Substance: OMALIZUMAB
     Indication: Rhinitis allergic
     Route: 058
  2. CHLORHEXIDINE [Concomitant]
     Active Substance: CHLORHEXIDINE
  3. DAPAGLIFLOZIN [Concomitant]
     Active Substance: DAPAGLIFLOZIN
  4. DIPHENHYDRAMINE [Concomitant]
     Active Substance: DIPHENHYDRAMINE
  5. EPINEPHRINE [Concomitant]
     Active Substance: EPINEPHRINE
  6. ESZOPICLONE [Concomitant]
     Active Substance: ESZOPICLONE
  7. FAMOTIDINE [Concomitant]
     Active Substance: FAMOTIDINE
  8. FEXOFENADINE [Concomitant]
     Active Substance: FEXOFENADINE HYDROCHLORIDE
  9. HALOPERIDOL [Concomitant]
     Active Substance: HALOPERIDOL
  10. LORAZEPAM [Concomitant]
     Active Substance: LORAZEPAM
  11. NALOXONE [Concomitant]
     Active Substance: NALOXONE
  12. OXYCODONE [Concomitant]
     Active Substance: OXYCODONE
  13. OZANIMOD [Concomitant]
     Active Substance: OZANIMOD
  14. PANTOPRAZOLE [Concomitant]
     Active Substance: PANTOPRAZOLE
  15. PREGABALIN [Concomitant]
     Active Substance: PREGABALIN
  16. PROMETHAZINE [Concomitant]
     Active Substance: PROMETHAZINE HYDROCHLORIDE
  17. ROPINIROLE [Concomitant]
     Active Substance: ROPINIROLE
  18. SUCRALFATE [Concomitant]
     Active Substance: SUCRALFATE

REACTIONS (2)
  - Angioedema [Unknown]
  - Swollen tongue [Unknown]
